FAERS Safety Report 6377766-7 (Version None)
Quarter: 2009Q3

REPORT INFORMATION
  Report Type: 
  Country: None (occurrence: None)
  Receive Date: 20090925
  Receipt Date: 20090904
  Transmission Date: 20100115
  Serious: Yes (Hospitalization, Disabling, Other)
  Sender: FDA-Public Use
  Company Number: CHPA2008US17350

PATIENT
  Age: 55 Year
  Sex: Male

DRUGS (1)
  1. 4 WAY FAST ACTING NASAL SPRAY (NCH) [Suspect]
     Dosage: UNK
     Dates: start: 20070831

REACTIONS (20)
  - ATELECTASIS [None]
  - CARDIOMEGALY [None]
  - COLLAPSE OF LUNG [None]
  - COUGH [None]
  - DEPRESSION [None]
  - DYSPNOEA [None]
  - EMPHYSEMA [None]
  - FATIGUE [None]
  - FLATULENCE [None]
  - HYPOVENTILATION [None]
  - LUNG INFILTRATION [None]
  - MALAISE [None]
  - MEDIASTINAL SHIFT [None]
  - MUSCULOSKELETAL CHEST PAIN [None]
  - NASOPHARYNGITIS [None]
  - OROPHARYNGEAL PAIN [None]
  - PAIN [None]
  - PNEUMOTHORAX [None]
  - SHOCK [None]
  - UPPER RESPIRATORY TRACT INFECTION [None]
